FAERS Safety Report 24394372 (Version 1)
Quarter: 2024Q4

REPORT INFORMATION
  Report Type: Spontaneous
  Country: GB (occurrence: GB)
  Receive Date: 20241004
  Receipt Date: 20241004
  Transmission Date: 20250114
  Serious: Yes (Other)
  Sender: NOVO NORDISK
  Company Number: None

PATIENT
  Sex: Female
  Weight: 127 kg

DRUGS (1)
  1. SEMAGLUTIDE [Suspect]
     Active Substance: SEMAGLUTIDE
     Indication: Product used for unknown indication
     Dosage: UNK
     Dates: start: 20240306

REACTIONS (1)
  - Cutaneous sarcoidosis [Recovering/Resolving]

NARRATIVE: CASE EVENT DATE: 20240327
